FAERS Safety Report 25736687 (Version 1)
Quarter: 2025Q3

REPORT INFORMATION
  Report Type: Spontaneous
  Country: US (occurrence: US)
  Receive Date: 20250828
  Receipt Date: 20250828
  Transmission Date: 20251020
  Serious: Yes (Hospitalization, Other)
  Sender: INCYTE
  Company Number: US-EVENT-004057

PATIENT
  Age: 68 Year

DRUGS (4)
  1. JAKAFI [Suspect]
     Active Substance: RUXOLITINIB
     Indication: Red blood cell count abnormal
     Dosage: 10 MILLIGRAM, BID
     Route: 065
  2. AMLODIPINE [Concomitant]
     Active Substance: AMLODIPINE BESYLATE
     Indication: Product used for unknown indication
     Route: 065
  3. POTASSIUM [Concomitant]
     Active Substance: POTASSIUM
     Indication: Product used for unknown indication
     Route: 065
  4. ASPIRIN [Concomitant]
     Active Substance: ASPIRIN
     Indication: Product used for unknown indication
     Route: 065

REACTIONS (8)
  - Thrombosis [Unknown]
  - Gingival bleeding [Unknown]
  - Myalgia [Unknown]
  - Back pain [Unknown]
  - Paraesthesia [Unknown]
  - Swelling [Unknown]
  - Gait disturbance [Unknown]
  - Off label use [Unknown]
